FAERS Safety Report 14726049 (Version 3)
Quarter: 2018Q2

REPORT INFORMATION
  Report Type: Report from Study
  Country: BE (occurrence: BE)
  Receive Date: 20180406
  Receipt Date: 20180428
  Transmission Date: 20180711
  Serious: Yes (Hospitalization)
  Sender: FDA-Public Use
  Company Number: BE-ROCHE-2098599

PATIENT
  Age: 51 Year
  Sex: Female
  Weight: 77 kg

DRUGS (10)
  1. EMCONCOR [Concomitant]
     Active Substance: BISOPROLOL FUMARATE
     Indication: EJECTION FRACTION DECREASED
     Route: 065
     Dates: start: 20180308
  2. EMCONCOR [Concomitant]
     Active Substance: BISOPROLOL FUMARATE
     Indication: SINUS TACHYCARDIA
  3. PANTOMED (BELGIUM) [Concomitant]
     Route: 065
     Dates: start: 20170802
  4. MOUTH WASH (DIPHENHYDRAMINE/LIDOCAINE/XANTHAN GUM) [Concomitant]
     Indication: STOMATITIS
     Dosage: DOSE: 1 UNIT
     Route: 065
     Dates: start: 20170830
  5. COBIMETINIB. [Suspect]
     Active Substance: COBIMETINIB
     Indication: COLORECTAL CANCER METASTATIC
     Dosage: DATE OF MOST RECENT DOSE OF STUDY DRUG 2 PRIOR TO AE ONSET  WAS RECIEVED ON 06/MAR/2018.?FREQUENCY:
     Route: 048
     Dates: start: 20180116
  6. INNOHEP [Concomitant]
     Active Substance: TINZAPARIN SODIUM
     Indication: EMBOLISM
     Dosage: DOSE:10000 U
     Route: 065
     Dates: start: 20171114
  7. VITAPANTOL [Concomitant]
     Dosage: DOSE: 1 SPRAY.?NAUSEAU PREVENTION.
     Route: 065
     Dates: start: 20171128
  8. METRONIDAZOLE. [Concomitant]
     Active Substance: METRONIDAZOLE
     Indication: DERMATITIS ACNEIFORM
     Dosage: DOSE: 1 OTHER
     Route: 065
     Dates: start: 20180131
  9. ATEZOLIZUMAB. [Suspect]
     Active Substance: ATEZOLIZUMAB
     Indication: COLORECTAL CANCER METASTATIC
     Dosage: DATE OF MOST RECENT DOSE OF STUDY DRUG PRIOR TO AE ONSET RECIEVED ON 28/FEB/2018.?-ON 21/MAR/2018, S
     Route: 042
     Dates: start: 20180116
  10. NIZORAL [Concomitant]
     Active Substance: KETOCONAZOLE
     Indication: SEBORRHOEIC DERMATITIS
     Dosage: DOSE: 1 OTHER
     Route: 065
     Dates: start: 20180131

REACTIONS (1)
  - Transient ischaemic attack [Recovered/Resolved]

NARRATIVE: CASE EVENT DATE: 20180325
